FAERS Safety Report 22896238 (Version 4)
Quarter: 2024Q2

REPORT INFORMATION
  Report Type: Spontaneous
  Country: US (occurrence: US)
  Receive Date: 20230901
  Receipt Date: 20240513
  Transmission Date: 20240716
  Serious: No
  Sender: FDA-Public Use
  Company Number: US-PFIZER INC-PV202300148792

PATIENT
  Age: 57 Year
  Sex: Female
  Weight: 109.04 kg

DRUGS (2)
  1. BOSULIF [Suspect]
     Active Substance: BOSUTINIB MONOHYDRATE
     Dosage: 200 MG, DAILY
     Route: 048
  2. BOSULIF [Suspect]
     Active Substance: BOSUTINIB MONOHYDRATE
     Dosage: 100 MG TABLETS, TAKE 2 TABLETS PO DAILY
     Route: 048
     Dates: start: 20221028

REACTIONS (3)
  - Fatigue [Recovering/Resolving]
  - Blood potassium increased [Unknown]
  - Sciatica [Unknown]

NARRATIVE: CASE EVENT DATE: 20230227
